FAERS Safety Report 7411030-X (Version None)
Quarter: 2011Q2

REPORT INFORMATION
  Report Type: 
  Country: None (occurrence: None)
  Receive Date: 20110413
  Receipt Date: 20110330
  Transmission Date: 20111010
  Serious: No
  Sender: FDA-Public Use
  Company Number: US-JNJFOC-20110401134

PATIENT
  Sex: Female
  Weight: 90.72 kg

DRUGS (9)
  1. IMITREX [Concomitant]
     Indication: MIGRAINE
     Route: 058
  2. DURAGESIC [Suspect]
     Indication: PAIN
     Route: 062
  3. SAVELLA [Concomitant]
     Indication: FIBROMYALGIA
     Route: 048
  4. DURAGESIC [Suspect]
     Route: 062
  5. LEVOTHYROXINE [Concomitant]
     Indication: HYPOTHYROIDISM
     Route: 048
  6. OXYCODONE [Concomitant]
     Indication: BREAKTHROUGH PAIN
     Route: 048
  7. FENTANYL-100 [Suspect]
     Indication: PAIN
     Dosage: 100UG/HR AND 75 UG/HR
     Route: 062
  8. LYRICA [Concomitant]
     Indication: FIBROMYALGIA
     Route: 048
  9. TREXIMET [Concomitant]
     Indication: MIGRAINE
     Dosage: 85 MG/500 MG
     Route: 048

REACTIONS (4)
  - DRUG EFFECT DECREASED [None]
  - HYPERHIDROSIS [None]
  - DRUG INEFFECTIVE [None]
  - INAPPROPRIATE SCHEDULE OF DRUG ADMINISTRATION [None]
